FAERS Safety Report 6798012-6 (Version None)
Quarter: 2010Q2

REPORT INFORMATION
  Report Type: 
  Country: None (occurrence: None)
  Receive Date: 20100625
  Receipt Date: 20100610
  Transmission Date: 20101027
  Serious: Yes (Other)
  Sender: FDA-Public Use
  Company Number: 20097736

PATIENT
  Sex: Male

DRUGS (1)
  1. LIORESAL [Suspect]
     Indication: MUSCLE SPASTICITY
     Dosage: 200 MCG, DAILY, INTRATHECAL
     Route: 037

REACTIONS (13)
  - ABASIA [None]
  - CONDITION AGGRAVATED [None]
  - HYPOTONIA [None]
  - MEDICAL DEVICE COMPLICATION [None]
  - MUSCLE SPASTICITY [None]
  - MUSCLE TIGHTNESS [None]
  - MYELITIS TRANSVERSE [None]
  - MYELOPATHY [None]
  - POSTURE ABNORMAL [None]
  - SPASTIC DIPLEGIA [None]
  - SPINAL OSTEOARTHRITIS [None]
  - THERAPEUTIC RESPONSE DECREASED [None]
  - UNDERDOSE [None]
